FAERS Safety Report 9604370 (Version 2)
Quarter: 2013Q4

REPORT INFORMATION
  Report Type: Report from Study
  Country: JP (occurrence: JP)
  Receive Date: 20131008
  Receipt Date: 20131029
  Transmission Date: 20140711
  Serious: Yes (Hospitalization)
  Sender: FDA-Public Use
  Company Number: PHHY2013JP111602

PATIENT
  Age: 42 Year
  Sex: Female

DRUGS (2)
  1. LEPONEX / CLOZARIL [Suspect]
     Indication: SCHIZOPHRENIA
     Dosage: UNK
     Route: 048
     Dates: start: 20120425
  2. LEPONEX / CLOZARIL [Suspect]
     Dosage: UNK
     Route: 048

REACTIONS (1)
  - Peritonitis [Recovered/Resolved]
